FAERS Safety Report 4323815-7 (Version None)
Quarter: 2004Q1

REPORT INFORMATION
  Report Type: 
  Country: None (occurrence: None)
  Receive Date: 20040326
  Receipt Date: 20040317
  Transmission Date: 20041129
  Serious: Yes (Other)
  Sender: FDA-Public Use
  Company Number: 200410955JP

PATIENT
  Sex: 0

DRUGS (2)
  1. LASIX [Suspect]
     Route: 041
  2. UNKNOWN DRUG [Concomitant]

REACTIONS (3)
  - IMMUNOGLOBULINS DECREASED [None]
  - METASTASES TO LUNG [None]
  - PULMONARY HAEMORRHAGE [None]
